FAERS Safety Report 26141669 (Version 1)
Quarter: 2025Q4

REPORT INFORMATION
  Report Type: Spontaneous
  Country: EU (occurrence: EU)
  Receive Date: 20251210
  Receipt Date: 20251210
  Transmission Date: 20260117
  Serious: Yes (Hospitalization)
  Sender: MYLAN
  Company Number: None

PATIENT
  Age: 71 Year
  Sex: Male
  Weight: 58 kg

DRUGS (4)
  1. GEMCITABINE [Suspect]
     Active Substance: GEMCITABINE
     Indication: Lung adenocarcinoma
     Dosage: 1250 MILLIGRAM/SQ. METER, TOTAL, C1 D1 ON 05-NOV-25
     Dates: start: 20251105, end: 20251105
  2. GEMCITABINE [Suspect]
     Active Substance: GEMCITABINE
     Dosage: 1250 MILLIGRAM/SQ. METER, TOTAL, C1 D1 ON 05-NOV-25
     Route: 042
     Dates: start: 20251105, end: 20251105
  3. GEMCITABINE [Suspect]
     Active Substance: GEMCITABINE
     Dosage: 1250 MILLIGRAM/SQ. METER, TOTAL, C1 D1 ON 05-NOV-25
     Route: 042
     Dates: start: 20251105, end: 20251105
  4. GEMCITABINE [Suspect]
     Active Substance: GEMCITABINE
     Dosage: 1250 MILLIGRAM/SQ. METER, TOTAL, C1 D1 ON 05-NOV-25
     Dates: start: 20251105, end: 20251105

REACTIONS (1)
  - Respiratory distress [Recovered/Resolved]

NARRATIVE: CASE EVENT DATE: 20251105
